FAERS Safety Report 19661143 (Version 1)
Quarter: 2021Q3

REPORT INFORMATION
  Report Type: Spontaneous
  Country: US (occurrence: US)
  Receive Date: 20210805
  Receipt Date: 20210805
  Transmission Date: 20211014
  Serious: No
  Sender: FDA-Public Use
  Company Number: US-PFIZER INC-2021861960

PATIENT
  Age: 64 Year
  Sex: Female

DRUGS (22)
  1. ATARAX [ALPRAZOLAM] [Concomitant]
     Active Substance: ALPRAZOLAM
  2. ZOFRAN ODT [Concomitant]
     Active Substance: ONDANSETRON HYDROCHLORIDE
  3. ATIVAN [Concomitant]
     Active Substance: LORAZEPAM
  4. HYZAAR [Concomitant]
     Active Substance: HYDROCHLOROTHIAZIDE\LOSARTAN POTASSIUM
  5. RITUXAN [Concomitant]
     Active Substance: RITUXIMAB
  6. AZO CRANBERRY [Concomitant]
     Active Substance: DIETARY SUPPLEMENT
  7. SEROQUEL [Concomitant]
     Active Substance: QUETIAPINE FUMARATE
  8. SYNTHROID [Concomitant]
     Active Substance: LEVOTHYROXINE SODIUM
  9. ASPIRIN (E.C.) [Concomitant]
     Active Substance: ASPIRIN
  10. BENDAMUSTINE [Concomitant]
     Active Substance: BENDAMUSTINE
  11. PRILOSEC [Concomitant]
     Active Substance: OMEPRAZOLE MAGNESIUM
  12. SENOKOT?S [Concomitant]
     Active Substance: DOCUSATE SODIUM\SENNOSIDES
  13. PREGABALIN. [Concomitant]
     Active Substance: PREGABALIN
  14. ZYRTEC [Concomitant]
     Active Substance: CETIRIZINE HYDROCHLORIDE
  15. FLEXERIL [CEFIXIME] [Concomitant]
     Active Substance: CEFIXIME
  16. WELLBUTRIN [Concomitant]
     Active Substance: BUPROPION HYDROCHLORIDE
  17. FENTANYL CITRATE. [Concomitant]
     Active Substance: FENTANYL CITRATE
  18. PENICILLINE [Concomitant]
     Active Substance: PENICILLIN G
  19. PHENOBARBITAL. [Concomitant]
     Active Substance: PHENOBARBITAL
  20. GABAPENTIN. [Suspect]
     Active Substance: GABAPENTIN
     Dosage: UNK
  21. RITUXAN HYCELA [Concomitant]
     Active Substance: HYALURONIDASE (HUMAN RECOMBINANT)\RITUXIMAB
  22. METHADONE [Concomitant]
     Active Substance: METHADONE HYDROCHLORIDE

REACTIONS (1)
  - Vertigo [Unknown]

NARRATIVE: CASE EVENT DATE: 20090813
